FAERS Safety Report 4617048-4 (Version None)
Quarter: 2005Q1

REPORT INFORMATION
  Report Type: 
  Country: None (occurrence: None)
  Receive Date: 20050323
  Receipt Date: 20050311
  Transmission Date: 20050727
  Serious: Yes (Death)
  Sender: FDA-Public Use
  Company Number: JP-JNJFOC-20050303333

PATIENT
  Sex: Male

DRUGS (7)
  1. DUROTEP [Suspect]
     Route: 062
  2. DUROTEP [Suspect]
     Indication: CANCER PAIN
     Route: 062
  3. MAGNESIUM OXIDE [Concomitant]
     Indication: CONSTIPATION
     Route: 049
  4. PROCHLORPERAZINE MALEATE [Concomitant]
     Route: 049
  5. DICLOFENAC SODIUM [Concomitant]
     Indication: CANCER PAIN
     Route: 051
  6. ETODOLAC [Concomitant]
     Indication: CANCER PAIN
     Route: 049
  7. PREDNISOLONE [Concomitant]
     Route: 049

REACTIONS (7)
  - ALANINE AMINOTRANSFERASE INCREASED [None]
  - ASPARTATE AMINOTRANSFERASE INCREASED [None]
  - BLOOD ALKALINE PHOSPHATASE INCREASED [None]
  - CHOLECYSTITIS [None]
  - DISSEMINATED INTRAVASCULAR COAGULATION [None]
  - INTRA-ABDOMINAL HAEMORRHAGE [None]
  - PNEUMONIA [None]
